FAERS Safety Report 15617422 (Version 2)
Quarter: 2018Q4

REPORT INFORMATION
  Report Type: Report from Study
  Country: UG (occurrence: UG)
  Receive Date: 20181114
  Receipt Date: 20181214
  Transmission Date: 20190205
  Serious: Yes (Congenital Anomaly, Other)
  Sender: FDA-Public Use
  Company Number: UG-MYLANLABS-2018M1086638

PATIENT
  Sex: Female
  Weight: 2.93 kg

DRUGS (1)
  1. EFAVIRENZ,LAMIVUDINE,TENOFOVIR MYLAN [Suspect]
     Active Substance: EFAVIRENZ\LAMIVUDINE\TENOFOVIR DISOPROXIL FUMARATE
     Indication: HIV INFECTION
     Dosage: UNK
     Route: 048
     Dates: start: 20180510

REACTIONS (3)
  - Foetal exposure during pregnancy [Recovered/Resolved]
  - Congenital umbilical hernia [Unknown]
  - Birth mark [Unknown]
